FAERS Safety Report 15308218 (Version 2)
Quarter: 2018Q3

REPORT INFORMATION
  Report Type: Spontaneous
  Country: ES (occurrence: ES)
  Receive Date: 20180822
  Receipt Date: 20180910
  Transmission Date: 20181010
  Serious: Yes (Death, Hospitalization)
  Sender: FDA-Public Use
  Company Number: ES-ELI_LILLY_AND_COMPANY-ES201808007255

PATIENT
  Age: 24743 Day
  Sex: Male

DRUGS (11)
  1. FENTANYL. [Concomitant]
     Active Substance: FENTANYL
     Indication: GROIN PAIN
     Dosage: 1 G, EVERY 8 HRS
     Route: 048
     Dates: start: 20161219
  2. GEMCITABINE HYDROCHLORIDE. [Suspect]
     Active Substance: GEMCITABINE HYDROCHLORIDE
     Indication: BLADDER TRANSITIONAL CELL CARCINOMA
     Dosage: UNK UNK, UNKNOWN
     Route: 042
     Dates: start: 20151223, end: 20160316
  3. SIMVASTATIN. [Concomitant]
     Active Substance: SIMVASTATIN
     Indication: HYPERCHOLESTEROLAEMIA
     Dosage: 10000 MG, DAILY
     Route: 048
  4. GEMCITABINE HYDROCHLORIDE. [Suspect]
     Active Substance: GEMCITABINE HYDROCHLORIDE
     Dosage: UNK UNK, UNKNOWN
     Route: 042
     Dates: start: 20170105, end: 20170302
  5. HYDROCHLOROTHIAZIDE. [Concomitant]
     Active Substance: HYDROCHLOROTHIAZIDE
     Indication: HYPERTENSION
     Dosage: 50000 MG, DAILY
     Route: 048
  6. MEDI4736 [Suspect]
     Active Substance: DURVALUMAB
     Indication: BLADDER TRANSITIONAL CELL CARCINOMA
     Dosage: 1500 MG, MONTHLY (1/M)
     Route: 042
     Dates: start: 20161201, end: 20161201
  7. IBUPROFEN. [Concomitant]
     Active Substance: IBUPROFEN
     Indication: GROIN PAIN
     Dosage: 600 MG, EVERY 8 HRS
     Route: 048
     Dates: start: 20161219
  8. MEDI4736 [Suspect]
     Active Substance: DURVALUMAB
     Dosage: 1500 MG, MONTHLY (1/M)
     Route: 042
     Dates: end: 20170104
  9. OMEPRAZOLE. [Concomitant]
     Active Substance: OMEPRAZOLE
     Indication: PAIN
     Dosage: 1000 G, TID
     Route: 048
  10. CARBOPLATINO [Suspect]
     Active Substance: CARBOPLATIN
     Indication: BLADDER TRANSITIONAL CELL CARCINOMA
     Dosage: UNK UNK, UNKNOWN
     Route: 042
     Dates: start: 20170105, end: 20170302
  11. PARACETAMOL [Concomitant]
     Active Substance: ACETAMINOPHEN
     Indication: GROIN PAIN
     Dosage: 1 G, EVERY 8 HRS
     Route: 048

REACTIONS (2)
  - Neutropenic sepsis [Recovered/Resolved]
  - Pancytopenia [Recovered/Resolved]

NARRATIVE: CASE EVENT DATE: 20170118
